FAERS Safety Report 6453175-7 (Version None)
Quarter: 2009Q4

REPORT INFORMATION
  Report Type: 
  Country: None (occurrence: None)
  Receive Date: 20091124
  Receipt Date: 20091118
  Transmission Date: 20100525
  Serious: Yes (Hospitalization)
  Sender: FDA-Public Use
  Company Number: US-BRISTOL-MYERS SQUIBB COMPANY-14867675

PATIENT
  Age: 57 Year
  Sex: Male

DRUGS (3)
  1. DASATINIB [Suspect]
     Indication: GLIOBLASTOMA
     Dosage: 150MG:13AUG-23SEP09 INTRPTED:09SEP-18SEP09 RESTAR:19SEP09 150MG:19OCT-28OCT09 100MG:05NOV09
     Route: 048
     Dates: start: 20090813, end: 20091111
  2. TEMODAR [Suspect]
     Indication: GLIOBLASTOMA
     Dosage: 160MG:13AUG-23SEP09 300MG:19OCT09-23OCT09
     Route: 048
     Dates: start: 20090813
  3. RADIATION THERAPY [Suspect]
     Indication: GLIOBLASTOMA
     Dates: start: 20090813, end: 20090923

REACTIONS (2)
  - DEHYDRATION [None]
  - DIARRHOEA [None]
